FAERS Safety Report 25985774 (Version 6)
Quarter: 2025Q4

REPORT INFORMATION
  Report Type: Spontaneous
  Country: US (occurrence: US)
  Receive Date: 20251031
  Receipt Date: 20251210
  Transmission Date: 20260118
  Serious: Yes (Life-Threatening, Hospitalization)
  Sender: ELI LILLY AND COMPANY
  Company Number: US-ELI_LILLY_AND_COMPANY-US202510035459

PATIENT
  Age: 70 Year
  Sex: Female
  Weight: 68 kg

DRUGS (22)
  1. PEMETREXED [Suspect]
     Active Substance: PEMETREXED
     Indication: Non-small cell lung cancer
     Dosage: 500 MG/M2, CYCLICAL
     Route: 042
     Dates: start: 20251010
  2. PEMBROLIZUMAB [Suspect]
     Active Substance: PEMBROLIZUMAB
     Indication: Non-small cell lung cancer
     Dosage: 200 MG
     Route: 042
     Dates: start: 20251010
  3. CARBOPLATIN [Suspect]
     Active Substance: CARBOPLATIN
     Indication: Non-small cell lung cancer
     Dosage: 485 MG, CYCLICAL
     Route: 042
  4. COVID-19 VACCINE [Concomitant]
     Indication: Product used for unknown indication
     Dosage: UNK
     Dates: start: 20251023, end: 20251023
  5. ERYTHROMYCIN [Concomitant]
     Active Substance: ERYTHROMYCIN
     Indication: Product used for unknown indication
  6. PREGABALIN [Concomitant]
     Active Substance: PREGABALIN
     Indication: Product used for unknown indication
  7. IBUPROFEN [Concomitant]
     Active Substance: IBUPROFEN
     Indication: Product used for unknown indication
  8. TYLENOL [Concomitant]
     Active Substance: ACETAMINOPHEN
     Indication: Non-small cell lung cancer
     Dosage: UNK
     Dates: start: 20210901
  9. ACIDOPHILUS/PECTIN [Concomitant]
     Indication: Non-small cell lung cancer
     Dosage: UNK
     Dates: start: 20250424
  10. CALCIUM CARBONATE\CHOLECALCIFEROL [Concomitant]
     Active Substance: CALCIUM CARBONATE\CHOLECALCIFEROL
     Indication: Non-small cell lung cancer
     Dosage: UNK
     Dates: start: 20160106
  11. DECADRON [Concomitant]
     Active Substance: DEXAMETHASONE
     Indication: Non-small cell lung cancer
     Dosage: UNK
     Dates: start: 20250919
  12. LEVOCETIRIZINE DIHYDROCHLORIDE [Concomitant]
     Active Substance: LEVOCETIRIZINE DIHYDROCHLORIDE
     Indication: Non-small cell lung cancer
     Dosage: 60 MG
     Dates: start: 20250424
  13. FLONASE [Concomitant]
     Active Substance: FLUTICASONE PROPIONATE
     Indication: Non-small cell lung cancer
     Dosage: UNK
     Dates: start: 20170120
  14. FOLVITE [Concomitant]
     Active Substance: FOLIC ACID
     Indication: Non-small cell lung cancer
     Dosage: 1 MG
     Dates: start: 20250913
  15. ATIVAN [Concomitant]
     Active Substance: LORAZEPAM
     Indication: Non-small cell lung cancer
     Dosage: 0.5 MG
     Dates: start: 20210901
  16. MILK OF MAGNESIA [Concomitant]
     Active Substance: MAGNESIUM HYDROXIDE
     Indication: Non-small cell lung cancer
     Dosage: UNK
     Dates: start: 20250801
  17. NARCAN [Concomitant]
     Active Substance: NALOXONE HYDROCHLORIDE
     Indication: Non-small cell lung cancer
     Dosage: UNK
     Dates: start: 20250930
  18. PRILOSEC [Concomitant]
     Active Substance: OMEPRAZOLE MAGNESIUM
     Indication: Non-small cell lung cancer
     Dosage: 20 MG
     Dates: start: 20210901
  19. PROAIR HFA [Concomitant]
     Active Substance: ALBUTEROL SULFATE
     Indication: Non-small cell lung cancer
     Dosage: UNK
     Dates: start: 20170106
  20. COMPAZINE [Concomitant]
     Active Substance: PROCHLORPERAZINE MALEATE
     Indication: Non-small cell lung cancer
     Dosage: 10 MG
     Dates: start: 20250918
  21. CETYLPYRIDINIUM CHLORIDE [Concomitant]
     Active Substance: CETYLPYRIDINIUM CHLORIDE
     Indication: Non-small cell lung cancer
     Dosage: UNK
     Dates: start: 20250718
  22. DESYREL [Concomitant]
     Active Substance: TRAZODONE HYDROCHLORIDE
     Indication: Non-small cell lung cancer
     Dosage: UNK
     Dates: start: 20250424

REACTIONS (1)
  - Febrile neutropenia [Recovered/Resolved]

NARRATIVE: CASE EVENT DATE: 20251024
